FAERS Safety Report 15083838 (Version 1)
Quarter: 2018Q2

REPORT INFORMATION
  Report Type: Spontaneous
  Country: US (occurrence: US)
  Receive Date: 20180628
  Receipt Date: 20180628
  Transmission Date: 20180711
  Serious: Yes (Hospitalization, Other)
  Sender: FDA-Public Use
  Company Number: US-INDIVIOR LIMITED-INDV-111863-2018

PATIENT
  Age: 29 Year
  Sex: Female
  Weight: 48.98 kg

DRUGS (3)
  1. SUBOXONE [Suspect]
     Active Substance: BUPRENORPHINE HYDROCHLORIDE\NALOXONE HYDROCHLORIDE
     Dosage: 2 MG WHILE IN ICU
     Route: 060
  2. SUBOXONE [Suspect]
     Active Substance: BUPRENORPHINE HYDROCHLORIDE\NALOXONE HYDROCHLORIDE
     Dosage: 1-2 8G FILMS DAILY
     Route: 060
  3. SUBOXONE [Suspect]
     Active Substance: BUPRENORPHINE HYDROCHLORIDE\NALOXONE HYDROCHLORIDE
     Indication: DRUG DEPENDENCE
     Dosage: 16MG DAILY
     Route: 060

REACTIONS (23)
  - Arterial injury [Unknown]
  - Road traffic accident [Recovered/Resolved]
  - Loss of personal independence in daily activities [Unknown]
  - Insomnia [Not Recovered/Not Resolved]
  - Post-traumatic stress disorder [Unknown]
  - Social problem [Unknown]
  - Victim of sexual abuse [Recovered/Resolved]
  - Hepatitis C [Unknown]
  - Somnolence [Unknown]
  - Victim of abuse [Recovered/Resolved]
  - Intentional underdose [Not Recovered/Not Resolved]
  - Headache [Unknown]
  - Fear [Unknown]
  - Schizophrenia [Unknown]
  - Depression [Not Recovered/Not Resolved]
  - Decreased appetite [Unknown]
  - Bulimia nervosa [Unknown]
  - Bipolar disorder [Unknown]
  - Drug dependence [Unknown]
  - Bruxism [Unknown]
  - Thoracic vertebral fracture [Unknown]
  - Pain [Not Recovered/Not Resolved]
  - Discomfort [Not Recovered/Not Resolved]
